FAERS Safety Report 9840436 (Version 1)
Quarter: 2013Q4

REPORT INFORMATION
  Report Type: Spontaneous
  Country: FR (occurrence: None)
  Receive Date: 20131211
  Receipt Date: 20131211
  Transmission Date: 20140711
  Serious: Yes (Other)
  Sender: FDA-Public Use
  Company Number: SPV1-2009-00294

PATIENT
  Age: 19 Year
  Sex: Male
  Weight: 54 kg

DRUGS (2)
  1. ELAPRASE [Suspect]
     Indication: MUCOPOLYSACCHARIDOSIS II
     Dosage: 1X/WEEK
     Route: 041
     Dates: start: 20061219, end: 20090211
  2. ZOLOFT /01011401/ (SERTRALINE) [Concomitant]

REACTIONS (6)
  - Infusion related reaction [None]
  - Urticaria [None]
  - Bronchospasm paradoxical [None]
  - Hypotension [None]
  - Tachycardia [None]
  - Respiratory disorder [None]
